FAERS Safety Report 9075383 (Version 1)
Quarter: 2013Q1

REPORT INFORMATION
  Report Type: Report from Study
  Country: US (occurrence: US)
  Receive Date: 20130129
  Receipt Date: 20130129
  Transmission Date: 20140127
  Serious: No
  Sender: FDA-Public Use
  Company Number: US-ABBOTT-12P-163-0921607-00

PATIENT
  Age: 48 Year
  Sex: Female

DRUGS (6)
  1. HUMIRA 40 MG/0.8 ML PEN [Suspect]
     Indication: PSORIASIS
     Dates: start: 201107
  2. TOPROL [Concomitant]
     Indication: TACHYCARDIA
  3. TOPROL [Concomitant]
     Indication: HYPERTENSION
  4. COZAR [Concomitant]
     Indication: HYPERTENSION
     Dosage: EVERY DAY
  5. VITAMIN B [Concomitant]
     Indication: VITAMIN SUPPLEMENTATION
  6. VITAMIN D [Concomitant]
     Indication: VITAMIN SUPPLEMENTATION

REACTIONS (10)
  - Device malfunction [Unknown]
  - Drug dose omission [Unknown]
  - Stress [Unknown]
  - Rash pustular [Not Recovered/Not Resolved]
  - Rash pruritic [Not Recovered/Not Resolved]
  - Rash erythematous [Not Recovered/Not Resolved]
  - Psoriasis [Unknown]
  - Pustular psoriasis [Unknown]
  - Arthralgia [Unknown]
  - Arthritis [Unknown]
